FAERS Safety Report 8996853 (Version 1)
Quarter: 2012Q4

REPORT INFORMATION
  Report Type: Spontaneous
  Country: US (occurrence: None)
  Receive Date: 20121228
  Receipt Date: 20121228
  Transmission Date: 20130627
  Serious: Yes (Life-Threatening, Hospitalization)
  Sender: FDA-Public Use
  Company Number: None

PATIENT
  Age: 66 Year
  Sex: Female
  Weight: 77.11 kg

DRUGS (1)
  1. CYMBALTA [Suspect]
     Dosage: 60 mg one a day
     Dates: start: 2006, end: 2012

REACTIONS (7)
  - Gastric disorder [None]
  - Pain [None]
  - Headache [None]
  - Vision blurred [None]
  - Hyperhidrosis [None]
  - Dyspnoea [None]
  - Malaise [None]
